FAERS Safety Report 26218438 (Version 1)
Quarter: 2025Q4

REPORT INFORMATION
  Report Type: Spontaneous
  Country: US (occurrence: US)
  Receive Date: 20251231
  Receipt Date: 20251231
  Transmission Date: 20260118
  Serious: No
  Sender: BOEHRINGER INGELHEIM
  Company Number: US-BoehringerIngelheim-2025-BI-117941

PATIENT

DRUGS (1)
  1. JASCAYD [Suspect]
     Active Substance: NERANDOMILAST
     Indication: Product used for unknown indication

REACTIONS (2)
  - Nausea [Unknown]
  - Secretion discharge [Unknown]
